FAERS Safety Report 8405133-0 (Version None)
Quarter: 2012Q2

REPORT INFORMATION
  Report Type: 
  Country: None (occurrence: None)
  Receive Date: 20120602
  Receipt Date: 20120530
  Transmission Date: 20120825
  Serious: Yes (Hospitalization)
  Sender: FDA-Public Use
  Company Number: SG-BAYER-2012-054056

PATIENT
  Age: 58 Year
  Sex: Male
  Weight: 70 kg

DRUGS (7)
  1. METOPROLOL TARTRATE [Concomitant]
     Indication: ISCHAEMIC HEART DISEASE PROPHYLAXIS
     Dosage: 25 MG, BID
     Route: 048
     Dates: start: 20110401, end: 20120410
  2. ASPIRIN [Interacting]
  3. PRASUGREL [Interacting]
     Indication: ANTIPLATELET THERAPY
     Dosage: 10 MG, QD
     Dates: start: 20110401, end: 20120410
  4. ASPIRIN [Suspect]
     Dosage: 100 MG, QD
     Route: 048
     Dates: start: 20110401, end: 20120410
  5. SIMVASTATIN [Concomitant]
     Indication: ISCHAEMIC HEART DISEASE PROPHYLAXIS
     Dosage: 20 MG, QD
     Dates: start: 20110401, end: 20120410
  6. VITAMIN B COMPLEX CAP [Concomitant]
     Dosage: 1 DF, QD
     Route: 048
  7. ENALAPRIL MALEATE [Concomitant]
     Indication: ISCHAEMIC HEART DISEASE PROPHYLAXIS
     Dosage: 2.5 MG, BID
     Route: 048
     Dates: start: 20110401, end: 20120410

REACTIONS (5)
  - OESOPHAGEAL ULCER [None]
  - MELAENA [None]
  - GASTRITIS EROSIVE [None]
  - DIVERTICULUM [None]
  - GASTROINTESTINAL HAEMORRHAGE [None]
